FAERS Safety Report 7631792-6 (Version None)
Quarter: 2011Q3

REPORT INFORMATION
  Report Type: 
  Country: None (occurrence: None)
  Receive Date: 20110725
  Receipt Date: 20110322
  Transmission Date: 20111222
  Serious: Yes (Hospitalization)
  Sender: FDA-Public Use
  Company Number: US-BRISTOL-MYERS SQUIBB COMPANY-15625635

PATIENT
  Age: 70 Year
  Sex: Male

DRUGS (4)
  1. COUMADIN [Suspect]
     Route: 065
  2. ASPIRIN [Suspect]
     Route: 065
  3. PLAVIX [Suspect]
     Route: 065
  4. MULTAQ [Suspect]
     Dosage: TABLET
     Route: 048
     Dates: start: 20110101

REACTIONS (1)
  - INTERNATIONAL NORMALISED RATIO INCREASED [None]
